FAERS Safety Report 5555017-0 (Version None)
Quarter: 2007Q4

REPORT INFORMATION
  Report Type: 
  Country: None (occurrence: None)
  Receive Date: 20071213
  Receipt Date: 20071205
  Transmission Date: 20080405
  Serious: Yes (Other)
  Sender: FDA-Public Use
  Company Number: JP-ABBOTT-07P-087-0427373-00

PATIENT
  Sex: Male

DRUGS (9)
  1. AKINETON [Suspect]
     Indication: EXTRAPYRAMIDAL DISORDER
     Route: 030
     Dates: start: 20070116, end: 20070121
  2. AKINETON [Suspect]
     Indication: SCHIZOPHRENIA
     Route: 048
     Dates: start: 20070116, end: 20070121
  3. HALOPERIDOL [Suspect]
     Indication: SCHIZOPHRENIA
     Route: 030
     Dates: start: 20070116, end: 20070121
  4. RISPERIDONE [Suspect]
     Indication: SCHIZOPHRENIA
     Route: 048
     Dates: start: 20070116, end: 20070121
  5. RISPERIDONE [Suspect]
     Route: 048
     Dates: start: 20070116, end: 20070116
  6. ETIZOLAM [Suspect]
     Indication: SCHIZOPHRENIA
     Route: 048
     Dates: start: 20070116, end: 20070121
  7. LEVOMEPROMAZINE MALEATE [Suspect]
     Indication: SCHIZOPHRENIA
     Route: 048
     Dates: start: 20070117, end: 20070121
  8. QUAZEPAM [Concomitant]
     Indication: SLEEP DISORDER
     Route: 048
     Dates: start: 20070116, end: 20070121
  9. QUAZEPAM [Concomitant]
     Indication: SCHIZOPHRENIA

REACTIONS (1)
  - NEUROLEPTIC MALIGNANT SYNDROME [None]
